FAERS Safety Report 15589808 (Version 1)
Quarter: 2018Q4

REPORT INFORMATION
  Report Type: Spontaneous
  Country: US (occurrence: US)
  Receive Date: 20181106
  Receipt Date: 20181106
  Transmission Date: 20190205
  Serious: Yes (Other)
  Sender: FDA-Public Use
  Company Number: US-DRREDDYS-USA/USA/18/0105121

PATIENT
  Age: 31 Year
  Sex: Male
  Weight: 52.27 kg

DRUGS (3)
  1. CIPROFLOXACIN. [Suspect]
     Active Substance: CIPROFLOXACIN
     Indication: GASTROENTERITIS
     Route: 048
     Dates: start: 20181020, end: 20181023
  2. FLAGYL [Suspect]
     Active Substance: METRONIDAZOLE\METRONIDAZOLE HYDROCHLORIDE
     Indication: GASTROENTERITIS
     Route: 048
     Dates: start: 20181020, end: 20181022
  3. METOCLOPRAMIDE. [Suspect]
     Active Substance: METOCLOPRAMIDE
     Indication: GASTROENTERITIS
     Route: 048
     Dates: start: 20181020, end: 20181021

REACTIONS (23)
  - Paraesthesia [Unknown]
  - Muscular weakness [Not Recovered/Not Resolved]
  - Panic attack [Unknown]
  - Heart rate irregular [Unknown]
  - Vision blurred [Unknown]
  - Movement disorder [Unknown]
  - Psychomotor hyperactivity [Unknown]
  - Nervous system disorder [Unknown]
  - Pain [Unknown]
  - Bone disorder [Unknown]
  - Hallucination [Unknown]
  - Photophobia [Not Recovered/Not Resolved]
  - Arthropathy [Unknown]
  - Emotional disorder [Unknown]
  - Delirium [Unknown]
  - Memory impairment [Unknown]
  - Visual impairment [Unknown]
  - Dizziness [Unknown]
  - Coordination abnormal [Unknown]
  - Hyperhidrosis [Unknown]
  - Tendon pain [Unknown]
  - Insomnia [Unknown]
  - Eye movement disorder [Unknown]

NARRATIVE: CASE EVENT DATE: 20181021
